FAERS Safety Report 4772782-0 (Version None)
Quarter: 2005Q3

REPORT INFORMATION
  Report Type: 
  Country: None (occurrence: None)
  Receive Date: 20050919
  Receipt Date: 20050912
  Transmission Date: 20060218
  Serious: Yes (Hospitalization)
  Sender: FDA-Public Use
  Company Number: DE-GLAXOSMITHKLINE-B0393642A

PATIENT

DRUGS (4)
  1. ONDANSETRON HYDROCHLORIDE [Suspect]
     Indication: CHEMOTHERAPY
     Route: 048
     Dates: start: 20050816, end: 20050820
  2. TAXOTERE [Suspect]
     Dosage: 123MG PER DAY
     Route: 042
     Dates: start: 20050816
  3. ADRIAMYCIN PFS [Suspect]
     Dosage: 81MG PER DAY
     Route: 042
     Dates: start: 20050816
  4. CYCLOPHOSPHAMIDE [Suspect]
     Route: 042
     Dates: start: 20050816

REACTIONS (3)
  - CARDIOVASCULAR DISORDER [None]
  - CONSTIPATION [None]
  - DEPRESSION [None]
